FAERS Safety Report 10360578 (Version 1)
Quarter: 2014Q3

REPORT INFORMATION
  Report Type: Spontaneous
  Country: JP (occurrence: JP)
  Receive Date: 20140804
  Receipt Date: 20140804
  Transmission Date: 20150326
  Serious: Yes (Death)
  Sender: FDA-Public Use
  Company Number: JP-BAYER-2014-111095

PATIENT
  Age: 70 Year
  Sex: Male

DRUGS (5)
  1. PRIMPERAN [Concomitant]
     Active Substance: METOCLOPRAMIDE HYDROCHLORIDE
  2. CIPROXAN [Suspect]
     Active Substance: CIPROFLOXACIN
     Indication: WHITE BLOOD CELL COUNT DECREASED
  3. ERBITUX [Concomitant]
     Active Substance: CETUXIMAB
  4. CIPROXAN [Suspect]
     Active Substance: CIPROFLOXACIN
     Indication: INFECTION PROPHYLAXIS
     Dosage: DAILY DOSE 600 MG
     Route: 048
  5. NOVAMIN [Concomitant]
     Active Substance: PROCHLORPERAZINE MALEATE

REACTIONS (1)
  - Rhabdomyolysis [Fatal]

NARRATIVE: CASE EVENT DATE: 20140630
